FAERS Safety Report 8152060-2 (Version None)
Quarter: 2012Q1

REPORT INFORMATION
  Report Type: 
  Country: None (occurrence: None)
  Receive Date: 20120221
  Receipt Date: 20120214
  Transmission Date: 20120608
  Serious: Yes (Hospitalization, Other)
  Sender: FDA-Public Use
  Company Number: US-PFIZER INC-2012040871

PATIENT

DRUGS (1)
  1. PREMARIN [Suspect]
     Dosage: UNK

REACTIONS (2)
  - THYROID DISORDER [None]
  - PARALYSIS [None]
